FAERS Safety Report 20049022 (Version 1)
Quarter: 2021Q4

REPORT INFORMATION
  Report Type: Spontaneous
  Country: FR (occurrence: FR)
  Receive Date: 20211109
  Receipt Date: 20211109
  Transmission Date: 20220303
  Serious: Yes (Hospitalization)
  Sender: FDA-Public Use
  Company Number: FR-ABBVIE-21K-056-4148214-00

PATIENT
  Sex: Female

DRUGS (1)
  1. VALPROATE SODIUM [Suspect]
     Active Substance: VALPROATE SODIUM
     Indication: Product used for unknown indication
     Route: 065

REACTIONS (4)
  - Vomiting [Unknown]
  - Weight increased [Unknown]
  - Alopecia [Unknown]
  - Maternal exposure during pregnancy [Unknown]
